FAERS Safety Report 6325226-1 (Version None)
Quarter: 2009Q3

REPORT INFORMATION
  Report Type: 
  Country: None (occurrence: None)
  Receive Date: 20090824
  Receipt Date: 20090819
  Transmission Date: 20100115
  Serious: Yes (Hospitalization)
  Sender: FDA-Public Use
  Company Number: PHHO2009US06336

PATIENT
  Sex: Male
  Weight: 108 kg

DRUGS (3)
  1. BLINDED ACZ885 ACZ+SOLINF+COPD [Suspect]
     Dosage: DOUBLE BLIND
     Route: 042
     Dates: start: 20080616, end: 20090422
  2. BLINDED NO TREATMENT RECEIVED NOMED [Suspect]
     Dosage: DOUBLE BLIND
     Route: 042
     Dates: start: 20080616, end: 20090422
  3. BLINDED PLACEBO COMP-PLA+ [Suspect]
     Dosage: DOUBLE BLIND
     Route: 042
     Dates: start: 20080616, end: 20090422

REACTIONS (4)
  - CENTRAL VENOUS CATHETERISATION [None]
  - STAPHYLOCOCCAL INFECTION [None]
  - SWELLING [None]
  - WOUND DRAINAGE [None]
